FAERS Safety Report 8315036-8 (Version None)
Quarter: 2012Q2

REPORT INFORMATION
  Report Type: 
  Country: None (occurrence: None)
  Receive Date: 20120426
  Receipt Date: 20120418
  Transmission Date: 20120825
  Serious: Yes (Other)
  Sender: FDA-Public Use
  Company Number: TW-ASTRAZENECA-2012SE25462

PATIENT
  Age: 85 Year

DRUGS (2)
  1. MEROPENEM [Suspect]
     Indication: ANTIBIOTIC THERAPY
     Route: 042
  2. VALPROIC ACID [Interacting]

REACTIONS (3)
  - ANTICONVULSANT DRUG LEVEL DECREASED [None]
  - CONVULSION [None]
  - DRUG INTERACTION [None]
